FAERS Safety Report 7689794-X (Version None)
Quarter: 2011Q3

REPORT INFORMATION
  Report Type: 
  Country: None (occurrence: None)
  Receive Date: 20110818
  Receipt Date: 20110815
  Transmission Date: 20111222
  Serious: Yes (Other)
  Sender: FDA-Public Use
  Company Number: US-BRISTOL-MYERS SQUIBB COMPANY-15970619

PATIENT
  Age: 63 Year
  Sex: Female

DRUGS (1)
  1. ORENCIA [Suspect]
     Dosage: LAST INFUSION 24MAY2011
     Dates: start: 20110412

REACTIONS (3)
  - RASH PRURITIC [None]
  - SKIN EXFOLIATION [None]
  - RENAL FAILURE ACUTE [None]
